FAERS Safety Report 9173915 (Version 3)
Quarter: 2013Q2

REPORT INFORMATION
  Report Type: Spontaneous
  Country: JP (occurrence: JP)
  Receive Date: 20130320
  Receipt Date: 20130410
  Transmission Date: 20140414
  Serious: Yes (Other)
  Sender: FDA-Public Use
  Company Number: JP-SANOFI-AVENTIS-2013SA028325

PATIENT
  Age: 27 Year
  Sex: Male

DRUGS (7)
  1. LEVOFLOXACIN [Suspect]
     Indication: PULMONARY TUBERCULOSIS
     Route: 048
     Dates: start: 20120411, end: 20120618
  2. ISONIAZID [Suspect]
     Indication: PULMONARY TUBERCULOSIS
     Route: 065
     Dates: start: 20111110, end: 20120618
  3. RIFAMPICIN [Suspect]
     Indication: PULMONARY TUBERCULOSIS
     Route: 065
     Dates: start: 20111110, end: 20120618
  4. ETHAMBUTOL [Suspect]
     Indication: PULMONARY TUBERCULOSIS
     Route: 065
     Dates: start: 20111110, end: 20120411
  5. GLYCYRRHIZIC ACID [Concomitant]
     Indication: LIVER DISORDER
     Dates: start: 20111201
  6. FEXOFENADINE [Concomitant]
     Indication: LIVER DISORDER
     Dates: start: 20111201
  7. URSODEOXYCHOLIC ACID [Concomitant]
     Indication: LIVER DISORDER
     Dates: start: 20111201

REACTIONS (1)
  - Drug reaction with eosinophilia and systemic symptoms [Recovered/Resolved]
